FAERS Safety Report 8416235-7 (Version None)
Quarter: 2012Q2

REPORT INFORMATION
  Report Type: 
  Country: None (occurrence: None)
  Receive Date: 20120606
  Receipt Date: 20120523
  Transmission Date: 20120825
  Serious: No
  Sender: FDA-Public Use
  Company Number: US-ASTRAZENECA-2012SE33304

PATIENT
  Age: 57 Year
  Sex: Female
  Weight: 58.5 kg

DRUGS (5)
  1. NEURONTIN [Concomitant]
  2. SEROQUEL [Suspect]
     Indication: SLEEP DISORDER
     Route: 048
     Dates: start: 20090101, end: 20110101
  3. SEROQUEL [Suspect]
     Route: 048
     Dates: start: 20110101, end: 20120501
  4. SEROQUEL [Suspect]
     Route: 048
     Dates: start: 20120501
  5. BACLOFEN [Concomitant]

REACTIONS (5)
  - PSYCHOMOTOR HYPERACTIVITY [None]
  - DRUG DEPENDENCE [None]
  - BURNING SENSATION [None]
  - INSOMNIA [None]
  - INTENTIONAL DRUG MISUSE [None]
